FAERS Safety Report 16910299 (Version 1)
Quarter: 2019Q4

REPORT INFORMATION
  Report Type: Spontaneous
  Country: ES (occurrence: UA)
  Receive Date: 20191011
  Receipt Date: 20191011
  Transmission Date: 20200122
  Serious: No
  Sender: FDA-Public Use
  Company Number: UA-ALLERGAN-1940951US

PATIENT
  Age: 33 Year
  Sex: Female

DRUGS (1)
  1. ASENAPINE MALEATE - BP [Suspect]
     Active Substance: ASENAPINE MALEATE
     Indication: PRODUCT USED FOR UNKNOWN INDICATION
     Dosage: UNK
     Dates: start: 201610

REACTIONS (3)
  - Drug hypersensitivity [Unknown]
  - Adverse event [Not Recovered/Not Resolved]
  - Lip swelling [Unknown]
